FAERS Safety Report 12084970 (Version 1)
Quarter: 2016Q1

REPORT INFORMATION
  Report Type: Spontaneous
  Country: US (occurrence: US)
  Receive Date: 20160217
  Receipt Date: 20160217
  Transmission Date: 20160526
  Serious: No
  Sender: FDA-Public Use
  Company Number: US-PERRIGO-15US013674

PATIENT
  Age: 61 Year
  Sex: Female

DRUGS (2)
  1. TRETINOIN. [Suspect]
     Active Substance: TRETINOIN
     Indication: PRODUCT USE ISSUE
     Dosage: UNK, NIGHTLY
     Route: 061
     Dates: start: 201507
  2. TRETINOIN. [Suspect]
     Active Substance: TRETINOIN
     Dosage: UNK, NIGHTLY
     Route: 061
     Dates: start: 201503, end: 201507

REACTIONS (2)
  - Drug effect decreased [Unknown]
  - Drug ineffective for unapproved indication [Unknown]

NARRATIVE: CASE EVENT DATE: 201507
